FAERS Safety Report 8461205-6 (Version None)
Quarter: 2012Q2

REPORT INFORMATION
  Report Type: 
  Country: None (occurrence: None)
  Receive Date: 20120323
  Receipt Date: 20111215
  Transmission Date: 20120825
  Serious: Yes (Other)
  Sender: FDA-Public Use
  Company Number: 163-21880-11061919

PATIENT
  Age: 72 Year
  Sex: Female

DRUGS (14)
  1. ATIVAN [Concomitant]
  2. HYDROTUSSIN (TUSSIN DM) [Concomitant]
  3. MAGNESIUM (MAGNESIUM) [Concomitant]
  4. ZITHROMAX [Concomitant]
  5. ALLOPURINOL [Concomitant]
  6. ASPIRIN [Concomitant]
  7. PHENERGAN HCL [Concomitant]
  8. POTASSIUM CHLORIDE [Concomitant]
  9. THYROID TAB [Concomitant]
  10. REVLIMID [Suspect]
     Indication: MULTIPLE MYELOMA
     Dosage: 25 MG, QOD, PO; 15 MG, DAILY X 21 DAYS, PO
     Route: 048
     Dates: start: 20080310
  11. REVLIMID [Suspect]
     Indication: MULTIPLE MYELOMA
     Dosage: 25 MG, QOD, PO; 15 MG, DAILY X 21 DAYS, PO
     Route: 048
     Dates: start: 20110401
  12. NEURONTIN [Concomitant]
  13. BACTRIM [Concomitant]
  14. NORVASC [Concomitant]

REACTIONS (2)
  - DIARRHOEA [None]
  - INFLUENZA LIKE ILLNESS [None]
